FAERS Safety Report 10261620 (Version 1)
Quarter: 2014Q2

REPORT INFORMATION
  Report Type: Spontaneous
  Country: FR (occurrence: FR)
  Receive Date: 20140626
  Receipt Date: 20140626
  Transmission Date: 20141212
  Serious: Yes (Hospitalization)
  Sender: FDA-Public Use
  Company Number: FR-PFIZER INC-2014169603

PATIENT
  Age: 82 Year
  Sex: Male

DRUGS (1)
  1. TAZOCILLINE [Suspect]
     Route: 042

REACTIONS (3)
  - Diarrhoea [Not Recovered/Not Resolved]
  - Clostridium difficile colitis [Not Recovered/Not Resolved]
  - Dehydration [Not Recovered/Not Resolved]
